FAERS Safety Report 9825891 (Version 1)
Quarter: 2013Q4

REPORT INFORMATION
  Report Type: Spontaneous
  Country: US (occurrence: None)
  Receive Date: 20131104
  Receipt Date: 20131104
  Transmission Date: 20140711
  Serious: Yes (Other)
  Sender: FDA-Public Use
  Company Number: 1000047759

PATIENT
  Age: 48 Year
  Sex: Male

DRUGS (12)
  1. DALIRESP (ROFLUMILAST) (500 MICROGRAM, TABLETS) [Suspect]
     Indication: CHRONIC OBSTRUCTIVE PULMONARY DISEASE
     Dosage: 500 MCG, 1 IN 1 D
     Route: 048
     Dates: start: 201301
  2. ADVAIR [Concomitant]
  3. PROAIR HFA [Concomitant]
  4. ALBUTEROL SULFATE [Concomitant]
  5. DUONEB [Concomitant]
  6. SPIRIVA [Concomitant]
  7. PREDNISONE [Concomitant]
  8. DICYCLOMINE HCL [Concomitant]
  9. FAMOTIDINE [Concomitant]
  10. METOCLOPRAM [Concomitant]
  11. DOMPERIDONE [Concomitant]
  12. NORTRIPTYLINE [Concomitant]

REACTIONS (2)
  - Erectile dysfunction [None]
  - Pollakiuria [None]
